FAERS Safety Report 4552834-0 (Version None)
Quarter: 2005Q1

REPORT INFORMATION
  Report Type: 
  Country: None (occurrence: None)
  Receive Date: 20050114
  Receipt Date: 20040914
  Transmission Date: 20050727
  Serious: Yes (Hospitalization, Other)
  Sender: FDA-Public Use
  Company Number: GB-BRISTOL-MYERS SQUIBB COMPANY-12701975

PATIENT
  Age: 57 Year
  Sex: Female
  Weight: 116 kg

DRUGS (10)
  1. CYCLOPHOSPHAMIDE [Suspect]
     Indication: BREAST CANCER
     Route: 042
     Dates: start: 20040517, end: 20040517
  2. PACLITAXEL [Suspect]
     Indication: BREAST CANCER
     Route: 042
     Dates: start: 20040816, end: 20040816
  3. EPIRUBICIN [Suspect]
     Indication: BREAST CANCER
     Route: 042
     Dates: start: 20040517, end: 20040517
  4. GEMCITABINE [Suspect]
     Indication: BREAST CANCER
     Route: 042
     Dates: start: 20040823, end: 20040823
  5. FUROSEMIDE [Concomitant]
     Route: 048
     Dates: start: 20040421
  6. LANSOPRAZOLE [Concomitant]
     Dates: start: 20040601
  7. ERYTHROMYCIN [Concomitant]
     Dates: start: 20040820
  8. TRIMETHOPRIM [Concomitant]
     Dates: start: 20040801
  9. BISOPROLOL FUMARATE [Concomitant]
     Route: 048
     Dates: start: 20040401
  10. CANDESARTAN [Concomitant]
     Dates: start: 20040401

REACTIONS (6)
  - AXILLARY VEIN THROMBOSIS [None]
  - COUGH [None]
  - INFECTION [None]
  - LYMPHOEDEMA [None]
  - PYREXIA [None]
  - SUBCLAVIAN VEIN THROMBOSIS [None]
